FAERS Safety Report 4656662-7 (Version None)
Quarter: 2005Q2

REPORT INFORMATION
  Report Type: 
  Country: None (occurrence: None)
  Receive Date: 20050506
  Receipt Date: 20050426
  Transmission Date: 20051028
  Serious: Yes (Death, Other)
  Sender: FDA-Public Use
  Company Number: 200513812GDDC

PATIENT
  Age: 60 Year
  Sex: Male

DRUGS (5)
  1. ARAVA [Suspect]
     Indication: RHEUMATOID ARTHRITIS
     Dosage: 20 MG QD PO
     Route: 048
     Dates: start: 20031201
  2. AMINOPHYLLINE (PHYLLOCONTIN) [Concomitant]
  3. FOSAMAX [Concomitant]
  4. VENTOLIN [Concomitant]
  5. PREDNISOLONE (DELTACORTRIL) [Concomitant]

REACTIONS (3)
  - HEPATIC FAILURE [None]
  - HEPATIC NECROSIS [None]
  - MULTI-ORGAN FAILURE [None]
